FAERS Safety Report 8889539 (Version 4)
Quarter: 2015Q3

REPORT INFORMATION
  Report Type: Spontaneous
  Country: US (occurrence: US)
  Receive Date: 20121107
  Receipt Date: 20150825
  Transmission Date: 20151125
  Serious: No
  Sender: FDA-Public Use
  Company Number: US-BIOGENIDEC-2012BI048293

PATIENT
  Age: 66 Year
  Sex: Female

DRUGS (1)
  1. TYSABRI [Suspect]
     Active Substance: NATALIZUMAB
     Indication: MULTIPLE SCLEROSIS
     Route: 042
     Dates: start: 20121001

REACTIONS (6)
  - Mobility decreased [Recovered/Resolved]
  - Dizziness [Not Recovered/Not Resolved]
  - Drug ineffective [Not Recovered/Not Resolved]
  - Gait disturbance [Not Recovered/Not Resolved]
  - Vein disorder [Not Recovered/Not Resolved]
  - Primary progressive multiple sclerosis [Not Recovered/Not Resolved]

NARRATIVE: CASE EVENT DATE: 20121101
